FAERS Safety Report 20850234 (Version 1)
Quarter: 2022Q2

REPORT INFORMATION
  Report Type: Spontaneous
  Country: US (occurrence: None)
  Receive Date: 20220518
  Receipt Date: 20220518
  Transmission Date: 20220721
  Serious: No
  Sender: FDA-Public Use
  Company Number: None

PATIENT
  Age: 23 Year
  Sex: Female
  Weight: 58.5 kg

DRUGS (1)
  1. OLANZAPINE [Suspect]
     Active Substance: OLANZAPINE
     Indication: Mental disorder
     Dosage: OTHER QUANTITY : 1 TABLET(S);?FREQUENCY : DAILY;?
     Route: 048

REACTIONS (12)
  - Dry mouth [None]
  - Nausea [None]
  - Vomiting [None]
  - Dyspnoea [None]
  - Musculoskeletal stiffness [None]
  - Hyperhidrosis [None]
  - Dissociation [None]
  - Grimacing [None]
  - Speech disorder [None]
  - Tachycardia [None]
  - Hunger [None]
  - Thirst [None]

NARRATIVE: CASE EVENT DATE: 20140601
